FAERS Safety Report 8472582-4 (Version None)
Quarter: 2012Q2

REPORT INFORMATION
  Report Type: 
  Country: None (occurrence: None)
  Receive Date: 20120627
  Receipt Date: 20120417
  Transmission Date: 20120825
  Serious: No
  Sender: FDA-Public Use
  Company Number: US-AMGEN-USASP2012025427

PATIENT

DRUGS (2)
  1. PROCRIT [Suspect]
     Indication: PRODUCT USED FOR UNKNOWN INDICATION
     Dosage: UNK
  2. NEUPOGEN [Concomitant]
     Dosage: UNK

REACTIONS (13)
  - HEADACHE [None]
  - IRRITABILITY [None]
  - PYREXIA [None]
  - INJECTION SITE PAIN [None]
  - ASTHENOPIA [None]
  - HYPERCHLORHYDRIA [None]
  - VISUAL IMPAIRMENT [None]
  - PAIN [None]
  - ALOPECIA [None]
  - WEIGHT INCREASED [None]
  - NAUSEA [None]
  - FATIGUE [None]
  - CHILLS [None]
